FAERS Safety Report 14775509 (Version 1)
Quarter: 2018Q2

REPORT INFORMATION
  Report Type: Spontaneous
  Country: DE (occurrence: DE)
  Receive Date: 20180418
  Receipt Date: 20180418
  Transmission Date: 20180711
  Serious: Yes (Other)
  Sender: FDA-Public Use
  Company Number: DE-PFIZER INC-2018155623

PATIENT
  Age: 38 Year
  Sex: Female

DRUGS (3)
  1. TAVOR EXPIDET [Suspect]
     Active Substance: LORAZEPAM
     Indication: ANXIETY
     Dosage: 1 MG, 1X/DAY
     Route: 048
     Dates: start: 20180228
  2. LYRICA [Concomitant]
     Active Substance: PREGABALIN
     Indication: EPILEPSY
     Dosage: 300 MG, 1X/DAY, LONG-TERM MEDICATION
     Route: 048
  3. LAMOTRIGIN [Concomitant]
     Active Substance: LAMOTRIGINE
     Indication: EPILEPSY
     Dosage: 300 MG, 1X/DAY, LONG-TERM MEDICATION
     Route: 048

REACTIONS (6)
  - Muscle twitching [Recovered/Resolved]
  - Suicidal ideation [Recovered/Resolved]
  - Abdominal pain upper [Recovered/Resolved]
  - Headache [Recovered/Resolved]
  - Blood pressure increased [Unknown]
  - Fatigue [Recovered/Resolved]

NARRATIVE: CASE EVENT DATE: 20180301
